FAERS Safety Report 7378422-9 (Version None)
Quarter: 2011Q1

REPORT INFORMATION
  Report Type: 
  Country: None (occurrence: None)
  Receive Date: 20110328
  Receipt Date: 20110317
  Transmission Date: 20110831
  Serious: Yes (Other)
  Sender: FDA-Public Use
  Company Number: JP-MERCK-1103USA02886

PATIENT
  Age: 74 Year
  Sex: Male

DRUGS (5)
  1. FUROSEMIDE [Concomitant]
     Route: 048
  2. AZELNIDIPINE [Concomitant]
     Route: 048
  3. PEPCID [Suspect]
     Route: 048
  4. DISOPYRAMIDE [Suspect]
     Route: 048
  5. CANDESARTAN [Concomitant]
     Route: 048

REACTIONS (1)
  - TOXICITY TO VARIOUS AGENTS [None]
